FAERS Safety Report 6566874-3 (Version None)
Quarter: 2010Q1

REPORT INFORMATION
  Report Type: 
  Country: None (occurrence: None)
  Receive Date: 20100202
  Receipt Date: 20100122
  Transmission Date: 20100710
  Serious: Yes (Hospitalization)
  Sender: FDA-Public Use
  Company Number: B0630183A

PATIENT
  Age: 35 Year
  Sex: Female

DRUGS (4)
  1. LAMIVUDINE [Suspect]
     Dosage: 300MG PER DAY
  2. STAVUDINE [Suspect]
     Indication: HIV INFECTION
     Dosage: 60MG PER DAY
  3. EFAVIRENZ [Suspect]
     Indication: HIV INFECTION
     Dosage: 600MG PER DAY
  4. ANTITUBERCULOTIC [Concomitant]
     Indication: PULMONARY TUBERCULOSIS

REACTIONS (8)
  - CARDIAC OUTPUT DECREASED [None]
  - CARDIOMEGALY [None]
  - DYSPNOEA [None]
  - GRANULOMA [None]
  - IMMUNE RECONSTITUTION SYNDROME [None]
  - LYMPHADENOPATHY [None]
  - PERICARDITIS [None]
  - VENTRICULAR HYPOKINESIA [None]
